FAERS Safety Report 9564106 (Version 1)
Quarter: 2013Q3

REPORT INFORMATION
  Report Type: Spontaneous
  Country: US (occurrence: US)
  Receive Date: 20130929
  Receipt Date: 20130929
  Transmission Date: 20140515
  Serious: No
  Sender: FDA-Public Use
  Company Number: US-009507513-1309USA013081

PATIENT
  Age: 3 Year
  Sex: Male
  Weight: 18.14 kg

DRUGS (2)
  1. CLARITIN CHEWABLE TABLETS [Suspect]
     Indication: SEASONAL ALLERGY
     Dosage: 5 MG, QD
     Route: 048
     Dates: start: 2013
  2. CLARITIN CHEWABLE TABLETS [Suspect]
     Dosage: 5 MG, ONCE
     Dates: start: 20130916

REACTIONS (2)
  - Accidental overdose [Unknown]
  - No adverse event [Unknown]
